FAERS Safety Report 8502151-9 (Version None)
Quarter: 2012Q2

REPORT INFORMATION
  Report Type: 
  Country: None (occurrence: None)
  Receive Date: 20120405
  Receipt Date: 20101026
  Transmission Date: 20120825
  Serious: Yes (Other)
  Sender: FDA-Public Use
  Company Number: PHHY2010US69876

PATIENT
  Age: 73 Year
  Sex: Female

DRUGS (5)
  1. CELEXA [Concomitant]
  2. SYNTHROID [Concomitant]
  3. CYANOCOBALAMIN [Concomitant]
  4. RECLAST [Suspect]
     Indication: OSTEOPOROSIS POSTMENOPAUSAL
     Dosage: 5 MG, INTRAVENOUS
     Route: 042
     Dates: start: 20100729, end: 20100729
  5. ZOCOR [Concomitant]

REACTIONS (2)
  - BONE PAIN [None]
  - ARTHRALGIA [None]
